FAERS Safety Report 4302190-8 (Version None)
Quarter: 2004Q1

REPORT INFORMATION
  Report Type: 
  Country: None (occurrence: None)
  Receive Date: 20040220
  Receipt Date: 20040212
  Transmission Date: 20041129
  Serious: Yes (Hospitalization)
  Sender: FDA-Public Use
  Company Number: FR-JNJFOC-20040202795

PATIENT
  Age: 61 Year
  Sex: Female
  Weight: 87 kg

DRUGS (14)
  1. REMICADE [Suspect]
     Indication: RHEUMATOID ARTHRITIS
     Dosage: 300 MG, 1 IN 1 MONTH, INTRAVENOUS
     Route: 042
     Dates: start: 20020302, end: 20030122
  2. PREDNISONE [Suspect]
     Indication: RHEUMATOID ARTHRITIS
     Dosage: 7.5 MG, 1 IN 1 DAY, ORAL
     Route: 048
  3. METHOTREXATE [Suspect]
     Indication: RHEUMATOID ARTHRITIS
     Dosage: SEE IMAGE
     Route: 048
     Dates: end: 20021001
  4. METHOTREXATE [Suspect]
     Indication: RHEUMATOID ARTHRITIS
     Dosage: SEE IMAGE
     Route: 048
     Dates: start: 20021001
  5. FOLIC ACID [Concomitant]
  6. OROCAL (CALCIUM CARBONATE) [Concomitant]
  7. OMEPRAZOLE [Concomitant]
  8. SIMVASTATIN [Concomitant]
  9. CLONAZEPAM [Concomitant]
  10. HEXAQUINE (HEXAQUINE) [Concomitant]
  11. UTROGESTRAN (PROGESTERONE) [Concomitant]
  12. ENDOTELON (ENDOTELON) [Concomitant]
  13. ESTRADIOL [Concomitant]
  14. NEURONTIN [Concomitant]

REACTIONS (6)
  - BRONCHIOLITIS [None]
  - COUGH [None]
  - ENTEROBACTER INFECTION [None]
  - HAEMOPHILUS INFECTION [None]
  - PYREXIA [None]
  - SINUSITIS [None]
